FAERS Safety Report 12994948 (Version 3)
Quarter: 2017Q2

REPORT INFORMATION
  Report Type: Report from Study
  Country: US (occurrence: US)
  Receive Date: 20161202
  Receipt Date: 20170501
  Transmission Date: 20170830
  Serious: Yes (Hospitalization, Other)
  Sender: FDA-Public Use
  Company Number: US-TEVA-717383USA

PATIENT
  Age: 40 Year
  Sex: Female

DRUGS (2)
  1. LAMOTRIGINE. [Suspect]
     Active Substance: LAMOTRIGINE
     Route: 065
  2. CLOZAPINE. [Suspect]
     Active Substance: CLOZAPINE
     Route: 048

REACTIONS (6)
  - Pneumonia [Unknown]
  - White blood cell count increased [Unknown]
  - Splenectomy [Unknown]
  - B-cell lymphoma [Unknown]
  - Granulocytopenia [Recovered/Resolved]
  - Immunosuppression [Unknown]

NARRATIVE: CASE EVENT DATE: 20161121
